FAERS Safety Report 15733135 (Version 2)
Quarter: 2018Q4

REPORT INFORMATION
  Report Type: Spontaneous
  Country: JP (occurrence: JP)
  Receive Date: 20181218
  Receipt Date: 20181224
  Transmission Date: 20190205
  Serious: Yes (Other)
  Sender: FDA-Public Use
  Company Number: JP-IPSEN BIOPHARMACEUTICALS, INC.-2018-19114

PATIENT
  Age: 67 Year
  Sex: Female

DRUGS (7)
  1. FLUOROURACIL. [Suspect]
     Active Substance: FLUOROURACIL
     Indication: COLON CANCER
  2. IRINOTECAN LIPOSOME [Suspect]
     Active Substance: IRINOTECAN
     Indication: COLON CANCER
     Dosage: NOT REPORTED
  3. RAMUCIRUMAB [Suspect]
     Active Substance: RAMUCIRUMAB
     Indication: COLON CANCER
  4. OXALIPLATIN. [Concomitant]
     Active Substance: OXALIPLATIN
     Indication: COLON CANCER
  5. BEVACIZUMAB. [Concomitant]
     Active Substance: BEVACIZUMAB
     Indication: COLON CANCER
  6. CAPECITABINE. [Concomitant]
     Active Substance: CAPECITABINE
     Indication: COLON CANCER
  7. FOLINIC ACID [Suspect]
     Active Substance: LEUCOVORIN
     Indication: COLON CANCER

REACTIONS (1)
  - Vitamin B1 deficiency [Unknown]
